FAERS Safety Report 6967357-9 (Version None)
Quarter: 2010Q3

REPORT INFORMATION
  Report Type: 
  Country: None (occurrence: None)
  Receive Date: 20100901
  Receipt Date: 20100819
  Transmission Date: 20110219
  Serious: Yes (Other)
  Sender: FDA-Public Use
  Company Number: 2010MA001779

PATIENT
  Age: 75 Year
  Sex: Male

DRUGS (6)
  1. TRAMADOL HYDROCHLORIDE [Suspect]
     Dosage: 50 MG;BID
     Dates: start: 20100727
  2. ORAMORPH SR [Suspect]
     Indication: PAIN
     Dosage: 10 MG;PRN;PO
     Route: 048
     Dates: start: 20100727, end: 20100727
  3. METFORMIN [Concomitant]
  4. ENOXAPARIN SODIUM [Concomitant]
  5. ACETAMINOPHEN [Concomitant]
  6. PREV MEDS [Concomitant]

REACTIONS (2)
  - CIRCULATORY COLLAPSE [None]
  - MIOSIS [None]
